FAERS Safety Report 5627503-6 (Version None)
Quarter: 2008Q1

REPORT INFORMATION
  Report Type: 
  Country: None (occurrence: None)
  Receive Date: 20080215
  Receipt Date: 20071113
  Transmission Date: 20080703
  Serious: No
  Sender: FDA-Public Use
  Company Number: A0691006A

PATIENT
  Age: 73 Year
  Sex: Male
  Weight: 72.7 kg

DRUGS (5)
  1. COREG CR [Suspect]
     Dosage: 20MG IN THE MORNING
     Route: 048
  2. VASOTEC [Concomitant]
     Dosage: 20MG TWICE PER DAY
     Route: 048
  3. LIPITOR [Concomitant]
  4. ZETIA [Concomitant]
  5. ASPIRIN [Concomitant]

REACTIONS (2)
  - DRUG INEFFECTIVE [None]
  - ORTHOSTATIC HYPOTENSION [None]
